FAERS Safety Report 9386107 (Version 2)
Quarter: 2013Q3

REPORT INFORMATION
  Report Type: Spontaneous
  Country: US (occurrence: US)
  Receive Date: 20130707
  Receipt Date: 20130717
  Transmission Date: 20140515
  Serious: Yes (Hospitalization)
  Sender: FDA-Public Use
  Company Number: US-UCBSA-077257

PATIENT
  Age: 21 Year
  Sex: Female
  Weight: 52.1 kg

DRUGS (4)
  1. CIMZIA [Suspect]
     Indication: CROHN^S DISEASE
     Dosage: LOT NO. 79309; EXPIRY DATE: JUL-2015
     Dates: start: 20121026
  2. FOLIC ACID [Concomitant]
     Indication: CROHN^S DISEASE
     Route: 048
     Dates: start: 201210
  3. METHOTREXATE [Concomitant]
     Indication: CROHN^S DISEASE
     Route: 048
     Dates: start: 201210
  4. SPINTECH [Concomitant]
     Indication: ORAL CONTRACEPTION
     Route: 048
     Dates: start: 201212

REACTIONS (3)
  - Food poisoning [Recovered/Resolved]
  - Abdominal discomfort [Recovered/Resolved]
  - Diarrhoea [Recovered/Resolved]
